FAERS Safety Report 5675204-0 (Version None)
Quarter: 2008Q2

REPORT INFORMATION
  Report Type: 
  Country: None (occurrence: None)
  Receive Date: 20080303
  Receipt Date: 20071016
  Transmission Date: 20081010
  Serious: Yes (Life-Threatening, Hospitalization)
  Sender: FDA-Public Use
  Company Number: RB-8336-2007

PATIENT
  Age: 24 Month
  Sex: Male
  Weight: 12.9275 kg

DRUGS (3)
  1. SUBOXONE [Suspect]
     Dosage: 8 MG TOTAL ONE TIME DOSE SUBLINGUAL
     Route: 060
     Dates: start: 20071013, end: 20071013
  2. ACTIDOSE AQUA [Concomitant]
  3. NARCAN [Concomitant]

REACTIONS (6)
  - ACCIDENTAL EXPOSURE [None]
  - AGITATION [None]
  - EYE ROLLING [None]
  - MIOSIS [None]
  - MOOD ALTERED [None]
  - SOMNOLENCE [None]
